FAERS Safety Report 7889075-5 (Version None)
Quarter: 2011Q4

REPORT INFORMATION
  Report Type: 
  Country: None (occurrence: None)
  Receive Date: 20111103
  Receipt Date: 20111101
  Transmission Date: 20120403
  Serious: Yes (Other)
  Sender: FDA-Public Use
  Company Number: US-PFIZER INC-2011266976

PATIENT
  Sex: Female
  Weight: 57.596 kg

DRUGS (5)
  1. NEURONTIN [Suspect]
     Indication: MUSCULOSKELETAL PAIN
     Dosage: 300 MG, 1X/DAY
     Route: 048
     Dates: start: 20110922, end: 20110901
  2. CRESTOR [Concomitant]
     Dosage: UNK
  3. NEURONTIN [Suspect]
     Indication: NEURALGIA
     Dosage: 300 MG, 2X/DAY
     Dates: start: 20110901
  4. ACETYLSALICYLIC ACID [Concomitant]
     Dosage: UNK
  5. NEURONTIN [Suspect]
     Dosage: 300 MG, 3X/DAY
     Dates: start: 20110901, end: 20111014

REACTIONS (2)
  - ALOPECIA [None]
  - PERIARTHRITIS [None]
